FAERS Safety Report 23953261 (Version 3)
Quarter: 2024Q3

REPORT INFORMATION
  Report Type: Report from Study
  Country: US (occurrence: US)
  Receive Date: 20240608
  Receipt Date: 20240809
  Transmission Date: 20241016
  Serious: Yes (Hospitalization, Other)
  Sender: ABBVIE
  Company Number: US-ABBVIE-5787993

PATIENT
  Sex: Male

DRUGS (1)
  1. IMBRUVICA [Suspect]
     Active Substance: IBRUTINIB
     Indication: Non-Hodgkin^s lymphoma
     Dosage: 420 MG
     Route: 048

REACTIONS (4)
  - Vitamin C deficiency [Unknown]
  - Malaise [Unknown]
  - Illness [Recovering/Resolving]
  - Adverse drug reaction [Unknown]
